FAERS Safety Report 7801694-0 (Version None)
Quarter: 2011Q4

REPORT INFORMATION
  Report Type: 
  Country: None (occurrence: None)
  Receive Date: 20111007
  Receipt Date: 20110929
  Transmission Date: 20120403
  Serious: Yes (Hospitalization)
  Sender: FDA-Public Use
  Company Number: US-ELI_LILLY_AND_COMPANY-US201110000174

PATIENT
  Age: 75 Year
  Sex: Female

DRUGS (6)
  1. PRAVACHOL [Concomitant]
  2. WELCHOL [Concomitant]
  3. ADCIRCA [Suspect]
     Dosage: 20 MG, BID
  4. CLONAZEPAM [Concomitant]
  5. ASCORBIC ACID [Concomitant]
  6. URECHOLINE [Concomitant]
     Dosage: 25 MG, TID

REACTIONS (2)
  - RENAL IMPAIRMENT [None]
  - HOSPITALISATION [None]
